FAERS Safety Report 4941024-5 (Version None)
Quarter: 2006Q1

REPORT INFORMATION
  Report Type: 
  Country: None (occurrence: None)
  Receive Date: 20060313
  Receipt Date: 20060228
  Transmission Date: 20060701
  Serious: Yes (Hospitalization)
  Sender: FDA-Public Use
  Company Number: FR-AVENTIS-200611236EU

PATIENT
  Age: 77 Year
  Sex: Female

DRUGS (7)
  1. FLUDEX [Suspect]
     Indication: HYPERTENSION
     Route: 048
  2. VERAPAMIL [Suspect]
     Route: 048
  3. ZYLORIC [Suspect]
     Route: 048
     Dates: start: 20060101
  4. CRESTOR [Suspect]
     Route: 048
  5. LASILIX [Suspect]
     Route: 048
  6. LOPRIL [Suspect]
     Route: 048
  7. TARDYFERON [Concomitant]

REACTIONS (4)
  - ALANINE AMINOTRANSFERASE INCREASED [None]
  - EOSINOPHILIA [None]
  - PYREXIA [None]
  - RASH MORBILLIFORM [None]
